FAERS Safety Report 5476289-7 (Version None)
Quarter: 2007Q4

REPORT INFORMATION
  Report Type: 
  Country: None (occurrence: None)
  Receive Date: 20071003
  Receipt Date: 20070924
  Transmission Date: 20080405
  Serious: Yes (Other)
  Sender: FDA-Public Use
  Company Number: US-PFIZER INC-2007079645

PATIENT
  Sex: Male
  Weight: 62.6 kg

DRUGS (1)
  1. LIPITOR [Suspect]
     Indication: BLOOD CHOLESTEROL INCREASED

REACTIONS (4)
  - BLOOD CHOLESTEROL INCREASED [None]
  - INTERVERTEBRAL DISC DISORDER [None]
  - MUSCLE CONTRACTIONS INVOLUNTARY [None]
  - PROSTATE CANCER [None]
